FAERS Safety Report 18816602 (Version 10)
Quarter: 2023Q4

REPORT INFORMATION
  Report Type: Report from Study
  Country: US (occurrence: US)
  Receive Date: 20210201
  Receipt Date: 20231026
  Transmission Date: 20240109
  Serious: Yes (Other)
  Sender: FDA-Public Use
  Company Number: US-BOEHRINGERINGELHEIM-2021-BI-079318

PATIENT
  Age: 52 Year
  Sex: Female

DRUGS (6)
  1. SPIRIVA RESPIMAT [Suspect]
     Active Substance: TIOTROPIUM BROMIDE
     Indication: Chronic obstructive pulmonary disease
     Dosage: 2 INHALATION
     Route: 055
     Dates: start: 2018
  2. WIXELA INHUB [Concomitant]
     Active Substance: FLUTICASONE PROPIONATE\SALMETEROL XINAFOATE
     Indication: Product used for unknown indication
  3. ALBUTEROL [Concomitant]
     Active Substance: ALBUTEROL
     Indication: Product used for unknown indication
  4. HYDROCHLOROTHIAZIDE [Concomitant]
     Active Substance: HYDROCHLOROTHIAZIDE
     Indication: Product used for unknown indication
  5. FLONASE [Concomitant]
     Active Substance: FLUTICASONE PROPIONATE
     Indication: Product used for unknown indication
  6. LORAZEPAM [Concomitant]
     Active Substance: LORAZEPAM
     Indication: Product used for unknown indication

REACTIONS (19)
  - Sepsis [Recovered/Resolved]
  - Chronic obstructive pulmonary disease [Unknown]
  - Depression [Not Recovered/Not Resolved]
  - Memory impairment [Unknown]
  - Therapeutic response unexpected [Unknown]
  - Positive airway pressure therapy [Unknown]
  - Insomnia [Recovered/Resolved]
  - Hypoaesthesia [Recovering/Resolving]
  - Paraesthesia [Recovering/Resolving]
  - Pulmonary mass [Unknown]
  - Escherichia urinary tract infection [Recovered/Resolved]
  - COVID-19 [Recovered/Resolved]
  - Vertigo [Recovered/Resolved]
  - Visual impairment [Unknown]
  - Insomnia [Not Recovered/Not Resolved]
  - Dyspnoea [Not Recovered/Not Resolved]
  - Stomatitis [Recovered/Resolved]
  - Respiration abnormal [Unknown]
  - Productive cough [Unknown]

NARRATIVE: CASE EVENT DATE: 20180101
